FAERS Safety Report 11145189 (Version 3)
Quarter: 2016Q1

REPORT INFORMATION
  Report Type: Report from Study
  Country: TW (occurrence: TW)
  Receive Date: 20150528
  Receipt Date: 20160114
  Transmission Date: 20160525
  Serious: No
  Sender: FDA-Public Use
  Company Number: PHHY2014TW101220

PATIENT
  Age: 72 Year
  Sex: Male

DRUGS (4)
  1. SILODOSIN [Concomitant]
     Active Substance: SILODOSIN
     Indication: BENIGN PROSTATIC HYPERPLASIA
     Dosage: 4 MG, UNK
     Route: 048
     Dates: start: 20131209
  2. PIRACETAM [Concomitant]
     Active Substance: PIRACETAM
     Indication: DEMENTIA
     Dosage: 2400 MG, UNK
     Route: 048
     Dates: start: 20140226, end: 20140408
  3. TASIGNA [Suspect]
     Active Substance: NILOTINIB
     Indication: CHRONIC MYELOID LEUKAEMIA
     Dosage: 600 OT, UNK
     Route: 048
     Dates: start: 20130827
  4. DESMOPRESSIN [Concomitant]
     Active Substance: DESMOPRESSIN
     Indication: BENIGN PROSTATIC HYPERPLASIA
     Dosage: 0.1 MG, UNK
     Route: 048
     Dates: start: 20130916

REACTIONS (3)
  - Acne [Recovered/Resolved]
  - Acne [Not Recovered/Not Resolved]
  - Skin lesion [Recovered/Resolved]

NARRATIVE: CASE EVENT DATE: 20140310
